FAERS Safety Report 12461835 (Version 1)
Quarter: 2016Q2

REPORT INFORMATION
  Report Type: Report from Study
  Country: MY (occurrence: MY)
  Receive Date: 20160613
  Receipt Date: 20160613
  Transmission Date: 20160815
  Serious: Yes (Death, Other)
  Sender: FDA-Public Use
  Company Number: PHHY2016MY080969

PATIENT
  Age: 25 Year
  Sex: Male

DRUGS (1)
  1. GLIVEC [Suspect]
     Active Substance: IMATINIB MESYLATE
     Indication: CHRONIC MYELOID LEUKAEMIA
     Dosage: 400 MG, UNK
     Route: 065
     Dates: start: 201307, end: 201602

REACTIONS (6)
  - Blast crisis in myelogenous leukaemia [Unknown]
  - Neutropenic sepsis [Unknown]
  - Candida infection [Unknown]
  - Drug resistance [Unknown]
  - Systemic candida [Fatal]
  - Neutropenia [Unknown]

NARRATIVE: CASE EVENT DATE: 201603
